FAERS Safety Report 24987550 (Version 2)
Quarter: 2025Q1

REPORT INFORMATION
  Report Type: Report from Study
  Country: US (occurrence: US)
  Receive Date: 20250219
  Receipt Date: 20250320
  Transmission Date: 20250408
  Serious: Yes (Other)
  Sender: NOVARTIS
  Company Number: US-002147023-NVSC2025US013647

PATIENT
  Sex: Male

DRUGS (1)
  1. COSENTYX [Suspect]
     Active Substance: SECUKINUMAB
     Indication: Product used for unknown indication
     Dosage: 300 MG, QMO
     Route: 058

REACTIONS (6)
  - Autism spectrum disorder [Unknown]
  - Therapeutic response decreased [Unknown]
  - Psoriasis [Unknown]
  - Disease recurrence [Unknown]
  - Attention deficit hyperactivity disorder [Unknown]
  - Pain in extremity [Unknown]
